FAERS Safety Report 16701355 (Version 1)
Quarter: 2019Q3

REPORT INFORMATION
  Report Type: Spontaneous
  Country: IR (occurrence: IR)
  Receive Date: 20190814
  Receipt Date: 20190814
  Transmission Date: 20191004
  Serious: Yes (Other)
  Sender: FDA-Public Use
  Company Number: IR-DENTSPLY-2019SCDP000429

PATIENT

DRUGS (3)
  1. LIDOCAINE. [Suspect]
     Active Substance: LIDOCAINE
     Indication: ANAESTHESIA
     Dosage: 40 CC OF LIDOCAINE 1 % WITH NORMAL SALINE PLUS 50 MCG FENTANYL
  2. FENTANYL. [Suspect]
     Active Substance: FENTANYL
     Indication: ANAESTHESIA
     Dosage: UNK
  3. DEXMEDETOMIDINE. [Suspect]
     Active Substance: DEXMEDETOMIDINE
     Indication: ANAESTHESIA
     Dosage: 100 MILLIGRAM PLUS 40 CC LIDOCAINE 1 %

REACTIONS (6)
  - Seizure [Unknown]
  - Nausea [Unknown]
  - Dizziness [Unknown]
  - Hypotension [Unknown]
  - Vomiting [Unknown]
  - Arrhythmia [Unknown]
